FAERS Safety Report 9338152 (Version 1)
Quarter: 2013Q2

REPORT INFORMATION
  Report Type: Report from Study
  Country: FR (occurrence: FR)
  Receive Date: 20130610
  Receipt Date: 20130610
  Transmission Date: 20140414
  Serious: Yes (Life-Threatening, Hospitalization)
  Sender: FDA-Public Use
  Company Number: FR-ROCHE-1232302

PATIENT
  Age: 41 Year
  Sex: Male
  Weight: 112 kg

DRUGS (11)
  1. RITUXIMAB [Suspect]
     Indication: MANTLE CELL LYMPHOMA
     Route: 042
     Dates: start: 20110107
  2. RITUXIMAB [Suspect]
     Route: 065
     Dates: start: 20110202
  3. RITUXIMAB [Suspect]
     Dosage: X1 CYCLE
     Route: 065
     Dates: start: 20110223
  4. CYTARABINE [Suspect]
     Indication: MANTLE CELL LYMPHOMA
     Route: 042
     Dates: start: 20110105, end: 20110106
  5. CYTARABINE [Suspect]
     Route: 042
     Dates: start: 20110202
  6. CYTARABINE [Suspect]
     Dosage: X2/CYCLE
     Route: 065
     Dates: start: 20110223, end: 20110224
  7. CARBOPLATIN [Suspect]
     Indication: MANTLE CELL LYMPHOMA
     Route: 065
     Dates: start: 20110106
  8. CARBOPLATIN [Suspect]
     Route: 065
     Dates: start: 20110224
  9. DEXAMETHASONE [Suspect]
     Indication: MANTLE CELL LYMPHOMA
     Route: 042
     Dates: start: 20110105, end: 20110108
  10. DEXAMETHASONE [Suspect]
     Route: 042
     Dates: start: 20110202
  11. DEXAMETHASONE [Suspect]
     Dosage: X4/CYCLE
     Route: 042
     Dates: start: 20110223, end: 20110226

REACTIONS (2)
  - Febrile bone marrow aplasia [Recovered/Resolved]
  - Septic shock [Recovered/Resolved]
